FAERS Safety Report 8793270 (Version 2)
Quarter: 2012Q4

REPORT INFORMATION
  Report Type: 
  Country: US (occurrence: US)
  Receive Date: 20120918
  Receipt Date: 20121214
  Transmission Date: 20130627
  Serious: Yes (Hospitalization, Other)
  Sender: FDA-Public Use
  Company Number: US-SHIRE-ALL1-2012-04368

PATIENT
  Sex: Female

DRUGS (5)
  1. FIRAZYR [Suspect]
     Indication: HEREDITARY ANGIOEDEMA
     Dosage: 30 mg, As req^d
     Route: 058
     Dates: start: 20111207, end: 2012
  2. ALBUTEROL                          /00139501/ [Concomitant]
     Indication: BRONCHOSPASM
     Dosage: UNK, As req^d (two puffs as needed)
     Route: 055
  3. CETIRIZINE [Concomitant]
     Indication: RHINITIS
     Dosage: 10 mg, Unknown
     Route: 048
  4. BENADRYL                           /00000402/ [Concomitant]
     Indication: ANGIOEDEMA
     Dosage: 25 mg, Unknown
     Route: 048
  5. CIMETIDINE [Concomitant]
     Indication: ANGIOEDEMA
     Dosage: 300 mg, Unknown
     Route: 048

REACTIONS (1)
  - Pulmonary embolism [Recovering/Resolving]
